FAERS Safety Report 6096740-1 (Version None)
Quarter: 2009Q1

REPORT INFORMATION
  Report Type: 
  Country: None (occurrence: None)
  Receive Date: 20090227
  Receipt Date: 20090217
  Transmission Date: 20090719
  Serious: Yes (Other)
  Sender: FDA-Public Use
  Company Number: MY-PFIZER INC-2009173161

PATIENT

DRUGS (2)
  1. SULPERAZON [Suspect]
     Dosage: UNK
     Route: 042
     Dates: start: 20080107
  2. MEROPENEM [Concomitant]

REACTIONS (1)
  - RASH MACULO-PAPULAR [None]
